FAERS Safety Report 13869261 (Version 2)
Quarter: 2017Q3

REPORT INFORMATION
  Report Type: Spontaneous
  Country: GB (occurrence: GB)
  Receive Date: 20170815
  Receipt Date: 20170912
  Transmission Date: 20171127
  Serious: Yes (Hospitalization)
  Sender: FDA-Public Use
  Company Number: GB-IPSEN BIOPHARMACEUTICALS, INC.-2017-08733

PATIENT
  Age: 46 Year
  Sex: Male

DRUGS (2)
  1. SOMATULINE AUTOGEL 120MG [Suspect]
     Active Substance: LANREOTIDE ACETATE
     Indication: NEUROENDOCRINE TUMOUR
     Dosage: 120 MG
     Route: 058
     Dates: start: 2014
  2. SOMATULINE AUTOGEL 120MG [Suspect]
     Active Substance: LANREOTIDE ACETATE
     Indication: CARCINOID SYNDROME

REACTIONS (7)
  - Diarrhoea [Unknown]
  - Feeling abnormal [Unknown]
  - Vomiting [Unknown]
  - Fatigue [Unknown]
  - Abdominal pain upper [Unknown]
  - Decreased appetite [Unknown]
  - Discomfort [Unknown]

NARRATIVE: CASE EVENT DATE: 20170802
